FAERS Safety Report 15917172 (Version 1)
Quarter: 2019Q1

REPORT INFORMATION
  Report Type: Spontaneous
  Country: DE (occurrence: DE)
  Receive Date: 20190205
  Receipt Date: 20190205
  Transmission Date: 20190417
  Serious: Yes (Hospitalization)
  Sender: FDA-Public Use
  Company Number: DE-ACCORD-105314

PATIENT
  Age: 77 Year
  Sex: Male
  Weight: 90 kg

DRUGS (4)
  1. ASTONIN [Concomitant]
     Dosage: 0.1 MG, 1-0-0-0, TABLETTEN
     Route: 048
  2. TORASEMIDE [Suspect]
     Active Substance: TORSEMIDE
     Indication: PRODUCT USED FOR UNKNOWN INDICATION
     Dosage: 10 MG, 1-1-0-0, TABLETTEN
     Route: 048
  3. SPIRONOLACTONE. [Suspect]
     Active Substance: SPIRONOLACTONE
     Indication: PRODUCT USED FOR UNKNOWN INDICATION
     Dosage: 50 MG, 1-0-0-0, TABLETS
     Route: 048
  4. HYDROCORTISONE. [Concomitant]
     Active Substance: HYDROCORTISONE
     Dosage: 10 MG, 2-1-0-0, TABLETTEN
     Route: 048

REACTIONS (7)
  - Pyrexia [Unknown]
  - Hypertension [Unknown]
  - Cough [Unknown]
  - Exercise tolerance decreased [Unknown]
  - General physical health deterioration [Unknown]
  - Product administration error [Unknown]
  - Dehydration [Unknown]
